FAERS Safety Report 10075467 (Version 1)
Quarter: 2014Q2

REPORT INFORMATION
  Report Type: Report from Study
  Country: US (occurrence: US)
  Receive Date: 20140414
  Receipt Date: 20140414
  Transmission Date: 20141212
  Serious: Yes (Other)
  Sender: FDA-Public Use
  Company Number: US-ROCHE-1328147

PATIENT
  Age: 70 Year
  Sex: Female

DRUGS (1)
  1. ERIVEDGE [Suspect]
     Indication: BASAL CELL CARCINOMA
     Route: 048
     Dates: start: 20131025, end: 20131127

REACTIONS (11)
  - Blood bilirubin increased [Not Recovered/Not Resolved]
  - Skin ulcer [Not Recovered/Not Resolved]
  - Rash [Not Recovered/Not Resolved]
  - Hair colour changes [Unknown]
  - Ageusia [Not Recovered/Not Resolved]
  - Muscle spasms [Unknown]
  - Pruritus [Unknown]
  - Nausea [Unknown]
  - Malaise [Unknown]
  - Yellow skin [Not Recovered/Not Resolved]
  - Alopecia [Unknown]
